FAERS Safety Report 6214213-X (Version None)
Quarter: 2009Q2

REPORT INFORMATION
  Report Type: 
  Country: None (occurrence: None)
  Receive Date: 20090604
  Receipt Date: 20090522
  Transmission Date: 20091009
  Serious: Yes (Hospitalization)
  Sender: FDA-Public Use
  Company Number: ES-CELGENEUS-144-50794-09051637

PATIENT
  Age: 73 Year
  Sex: Male

DRUGS (2)
  1. VIDAZA [Suspect]
     Indication: MYELODYSPLASTIC SYNDROME
     Route: 058
     Dates: start: 20080324
  2. VIDAZA [Suspect]
     Route: 058
     Dates: end: 20080917

REACTIONS (3)
  - HAEMORRHAGIC DIATHESIS [None]
  - LIVER DISORDER [None]
  - PANCYTOPENIA [None]
